FAERS Safety Report 19649038 (Version 1)
Quarter: 2021Q3

REPORT INFORMATION
  Report Type: Spontaneous
  Country: FR (occurrence: FR)
  Receive Date: 20210803
  Receipt Date: 20210803
  Transmission Date: 20211014
  Serious: Yes (Hospitalization)
  Sender: FDA-Public Use
  Company Number: FR-ABBVIE-21K-056-4019080-00

PATIENT
  Age: 50 Year
  Sex: Female

DRUGS (3)
  1. LOXAPINE. [Suspect]
     Active Substance: LOXAPINE
     Indication: WRONG PATIENT RECEIVED PRODUCT
     Route: 048
     Dates: start: 20210712, end: 20210712
  2. HALOPERIDOL. [Suspect]
     Active Substance: HALOPERIDOL
     Indication: WRONG PATIENT RECEIVED PRODUCT
     Route: 048
     Dates: start: 20210712, end: 20210712
  3. DEPAKOTE [Suspect]
     Active Substance: DIVALPROEX SODIUM
     Indication: WRONG PATIENT RECEIVED PRODUCT
     Route: 048
     Dates: start: 20210712, end: 20210712

REACTIONS (2)
  - Wrong patient received product [Unknown]
  - Somnolence [Recovering/Resolving]

NARRATIVE: CASE EVENT DATE: 20210712
